FAERS Safety Report 8964905 (Version 1)
Quarter: 2012Q4

REPORT INFORMATION
  Report Type: Report from Study
  Country: FR (occurrence: FR)
  Receive Date: 20121213
  Receipt Date: 20121213
  Transmission Date: 20130627
  Serious: Yes (Hospitalization)
  Sender: FDA-Public Use
  Company Number: FR-ROCHE-1167566

PATIENT
  Age: 65 Year
  Sex: Male

DRUGS (15)
  1. RITUXIMAB [Suspect]
     Indication: CHRONIC LYMPHOCYTIC LEUKAEMIA
     Route: 041
     Dates: start: 20110404
  2. RITUXIMAB [Suspect]
     Route: 041
     Dates: start: 20110502
  3. RITUXIMAB [Suspect]
     Route: 041
     Dates: start: 20110516
  4. FLUDARA [Concomitant]
     Route: 002
     Dates: start: 20110503, end: 20110505
  5. ENDOXAN [Concomitant]
     Route: 002
     Dates: start: 20110503, end: 20110505
  6. BACTRIM [Concomitant]
     Route: 002
     Dates: start: 201104, end: 201106
  7. ZELITREX [Concomitant]
     Route: 065
     Dates: start: 201104
  8. MOTILIUM (FRANCE) [Concomitant]
  9. CLARITYNE [Concomitant]
  10. SPECIAFOLDINE [Concomitant]
  11. KESTINE [Concomitant]
  12. ZYLORIC [Concomitant]
  13. DIFFU K [Concomitant]
  14. TANGANIL [Concomitant]
  15. WELLVONE [Concomitant]

REACTIONS (1)
  - Toxic skin eruption [Recovered/Resolved]
